FAERS Safety Report 9507155 (Version 1)
Quarter: 2013Q1

REPORT INFORMATION
  Report Type: Spontaneous
  Country: US (occurrence: None)
  Receive Date: 20130305
  Receipt Date: 20130305
  Transmission Date: 20140127
  Serious: No
  Sender: FDA-Public Use
  Company Number: 163-21880-12050640

PATIENT
  Age: 53 Year
  Sex: Male

DRUGS (1)
  1. REVLIMID (LENALIDOMIDE) (25 MILLIGRAM, CAPSULES) [Suspect]
     Indication: PLASMA CELL MYELOMA
     Dosage: 25MG, DAILY X 21 DAYS ON , 7 DAYS OFF, PO
     Route: 048
     Dates: start: 20111025

REACTIONS (5)
  - Abasia [None]
  - Muscle spasms [None]
  - Pain [None]
  - Malaise [None]
  - Pain in extremity [None]
